FAERS Safety Report 5523807-6 (Version None)
Quarter: 2007Q4

REPORT INFORMATION
  Report Type: 
  Country: None (occurrence: None)
  Receive Date: 20071121
  Receipt Date: 20071115
  Transmission Date: 20080405
  Serious: Yes (Hospitalization)
  Sender: FDA-Public Use
  Company Number: US-ABBOTT-07P-163-0424842-00

PATIENT
  Sex: Male
  Weight: 98.1 kg

DRUGS (3)
  1. HUMIRA [Suspect]
     Indication: RHEUMATOID ARTHRITIS
     Route: 058
     Dates: start: 20060501
  2. WARFARIN SODIUM [Concomitant]
     Indication: COAGULATION FACTOR V LEVEL
     Route: 048
  3. FUROSEMIDE [Concomitant]
     Indication: CARDIAC DISORDER
     Route: 048

REACTIONS (4)
  - CELLULITIS [None]
  - LYMPHOEDEMA [None]
  - SYNCOPE [None]
  - THROMBOSIS [None]
